FAERS Safety Report 8137335-5 (Version None)
Quarter: 2012Q1

REPORT INFORMATION
  Report Type: 
  Country: None (occurrence: None)
  Receive Date: 20120103
  Receipt Date: 20111003
  Transmission Date: 20120608
  Serious: No
  Sender: FDA-Public Use
  Company Number: AE-2011-001558

PATIENT
  Age: 55 Year
  Sex: Female
  Weight: 59.8748 kg

DRUGS (5)
  1. HYPOTHYROID MEDICATION (THYROID THERAPY) [Concomitant]
  2. INCIVEK [Suspect]
     Dosage: 2250 MG (750 MG, 3 IN 1 D), ORAL
     Route: 048
     Dates: start: 20110913
  3. PREPARATION H (PREPARATION H /ISR/ ) [Concomitant]
  4. RIBAVIRIN [Concomitant]
  5. PEGASYS [Concomitant]

REACTIONS (6)
  - PROCTALGIA [None]
  - ANORECTAL DISCOMFORT [None]
  - HAEMORRHOIDS [None]
  - PAIN [None]
  - ANAL PRURITUS [None]
  - DIARRHOEA [None]
